FAERS Safety Report 7118570-1 (Version None)
Quarter: 2010Q4

REPORT INFORMATION
  Report Type: 
  Country: None (occurrence: None)
  Receive Date: 20101123
  Receipt Date: 20101119
  Transmission Date: 20110411
  Serious: Yes (Hospitalization, Other)
  Sender: FDA-Public Use
  Company Number: DE-BAYER-201047603GPV

PATIENT
  Age: 53 Year
  Sex: Female
  Weight: 92 kg

DRUGS (11)
  1. ASPIRIN [Suspect]
     Indication: ATRIAL FIBRILLATION
     Route: 048
     Dates: start: 20091227
  2. RASILEZ [Suspect]
     Indication: HYPERTENSION
     Route: 048
     Dates: start: 20090219
  3. FALITHROM [Suspect]
     Indication: ATRIAL FIBRILLATION
     Route: 048
     Dates: start: 20090630
  4. DIURETICS [Concomitant]
     Dates: start: 20090302
  5. CALCIUM CHANNEL BLOCKERS [Concomitant]
  6. CARMEN [Concomitant]
     Indication: HYPERTENSION
     Route: 048
     Dates: start: 20090630
  7. LISIHEXAL [Concomitant]
     Indication: HYPERTENSION
     Route: 048
     Dates: start: 20080306
  8. METOHEXAL [Concomitant]
     Indication: HYPERTENSION
     Route: 048
     Dates: start: 20081013
  9. DIGITOXIN [Concomitant]
     Indication: CARDIAC FAILURE
     Route: 048
     Dates: start: 20091227
  10. CARDULAR [Concomitant]
     Indication: HYPERTENSION
     Route: 048
  11. SPIRONOLACTONE [Concomitant]
     Indication: CARDIAC FAILURE

REACTIONS (5)
  - ALBUMIN URINE PRESENT [None]
  - ATRIAL FIBRILLATION [None]
  - EPISTAXIS [None]
  - HYPERTENSIVE CRISIS [None]
  - PROTEIN URINE PRESENT [None]
